FAERS Safety Report 11898526 (Version 1)
Quarter: 2016Q1

REPORT INFORMATION
  Report Type: Spontaneous
  Country: US (occurrence: None)
  Receive Date: 20160107
  Receipt Date: 20160107
  Transmission Date: 20160526
  Serious: Yes (Disabling)
  Sender: FDA-Public Use
  Company Number: None

PATIENT
  Age: 57 Year
  Sex: Male
  Weight: 97.52 kg

DRUGS (4)
  1. LISINOPRIL 10MG GSMS INCORPORATED [Suspect]
     Active Substance: LISINOPRIL
     Indication: HYPERTENSION
     Route: 048
  2. NAPROXEN. [Concomitant]
     Active Substance: NAPROXEN
  3. ETODOLAC. [Concomitant]
     Active Substance: ETODOLAC
  4. VIAGRA [Concomitant]
     Active Substance: SILDENAFIL CITRATE

REACTIONS (9)
  - Palpitations [None]
  - Erectile dysfunction [None]
  - Urine flow decreased [None]
  - Back pain [None]
  - Abdominal distension [None]
  - Insomnia [None]
  - Drug effect decreased [None]
  - Loss of libido [None]
  - Arthralgia [None]

NARRATIVE: CASE EVENT DATE: 20160106
